FAERS Safety Report 5986628-6 (Version None)
Quarter: 2008Q4

REPORT INFORMATION
  Report Type: 
  Country: None (occurrence: None)
  Receive Date: 20081209
  Receipt Date: 20081203
  Transmission Date: 20090506
  Serious: Yes (Other)
  Sender: FDA-Public Use
  Company Number: GB-ROCHE-589076

PATIENT
  Sex: Female

DRUGS (5)
  1. ROACCUTANE [Suspect]
     Indication: ROSACEA
     Route: 048
     Dates: start: 20080801, end: 20080929
  2. ROACCUTANE [Suspect]
     Route: 048
     Dates: start: 20080601, end: 20080801
  3. DAPSONE [Concomitant]
     Indication: ROSACEA
     Dosage: FREQUENCY REPORTED AS ONCE DAILY - ALTERNATE DAYS.
     Route: 048
     Dates: start: 20080401
  4. OMEPRAZOLE [Concomitant]
     Indication: DYSPEPSIA
     Route: 048
     Dates: start: 20070101
  5. PREDNISOLONE [Concomitant]
     Indication: ROSACEA
     Route: 048
     Dates: start: 20080501, end: 20080601

REACTIONS (2)
  - DEPRESSION [None]
  - SUICIDAL IDEATION [None]
